FAERS Safety Report 11157386 (Version 3)
Quarter: 2019Q4

REPORT INFORMATION
  Report Type: Spontaneous
  Country: DE (occurrence: DE)
  Receive Date: 20150603
  Receipt Date: 20191106
  Transmission Date: 20200122
  Serious: Yes (Other)
  Sender: FDA-Public Use
  Company Number: DE-ACCORD-031153

PATIENT
  Sex: Male

DRUGS (8)
  1. VINCRISTINE [Suspect]
     Active Substance: VINCRISTINE
     Indication: HODGKIN^S DISEASE
     Dosage: THE SUSPECT MEDICATION WAS TAKEN BY THE FATHER
     Dates: end: 201207
  2. ADRIAMYCIN [Suspect]
     Active Substance: DOXORUBICIN HYDROCHLORIDE
     Dosage: 7 COURSES
     Route: 065
     Dates: end: 201207
  3. DOXORUBICIN [Suspect]
     Active Substance: DOXORUBICIN
     Indication: HODGKIN^S DISEASE
     Dates: end: 201207
  4. BLEOMYCIN [Suspect]
     Active Substance: BLEOMYCIN SULFATE
     Indication: HODGKIN^S DISEASE
     Dosage: THE SUSPECT MEDICATION WAS TAKEN BY THE FATHER
     Dates: end: 201207
  5. CYCLOPHOSPHAMIDE. [Suspect]
     Active Substance: CYCLOPHOSPHAMIDE
     Indication: HODGKIN^S DISEASE
     Dosage: THE SUSPECT MEDICATION WAS TAKEN BY THE FATHER
     Route: 065
     Dates: end: 201207
  6. ETOPOSIDE. [Suspect]
     Active Substance: ETOPOSIDE
     Indication: HODGKIN^S DISEASE
     Dosage: THE SUSPECT MEDICATION WAS TAKEN BY THE FATHER
     Dates: end: 201207
  7. NATULAN [Suspect]
     Active Substance: PROCARBAZINE HYDROCHLORIDE
     Indication: HODGKIN^S DISEASE
     Dosage: THE SUSPECT MEDICATION WAS TAKEN BY THE FATHER
     Dates: end: 201207
  8. PREDNISOLONE. [Suspect]
     Active Substance: PREDNISOLONE
     Indication: HODGKIN^S DISEASE
     Dosage: THE SUSPECT MEDICATION WAS TAKEN BY THE FATHER
     Dates: end: 201207

REACTIONS (7)
  - Asplenia [Unknown]
  - Paternal exposure before pregnancy [Unknown]
  - Paternal exposure timing unspecified [Unknown]
  - Paternal drugs affecting foetus [Not Recovered/Not Resolved]
  - Congenital hepatobiliary anomaly [Unknown]
  - Off label use [Unknown]
  - Heart disease congenital [Not Recovered/Not Resolved]

NARRATIVE: CASE EVENT DATE: 20150220
